FAERS Safety Report 15693282 (Version 2)
Quarter: 2019Q4

REPORT INFORMATION
  Report Type: Spontaneous
  Country: DE (occurrence: DE)
  Receive Date: 20181206
  Receipt Date: 20191003
  Transmission Date: 20200122
  Serious: Yes (Other)
  Sender: FDA-Public Use
  Company Number: DE-BRISTOL-MYERS SQUIBB COMPANY-BMS-2018-114047

PATIENT
  Age: 1 Day
  Sex: Female
  Weight: .59 kg

DRUGS (2)
  1. NIVOLUMAB [Suspect]
     Active Substance: NIVOLUMAB
     Indication: PRODUCT USED FOR UNKNOWN INDICATION
     Dosage: 1 MG/KG, Q3WK
     Route: 064
     Dates: start: 2017
  2. IPILIMUMAB [Suspect]
     Active Substance: IPILIMUMAB
     Indication: PRODUCT USED FOR UNKNOWN INDICATION
     Dosage: 3 MG/KG, Q3WK
     Route: 064
     Dates: start: 2017

REACTIONS (8)
  - Premature baby [Unknown]
  - Intraventricular haemorrhage neonatal [Unknown]
  - Retinopathy of prematurity [Unknown]
  - Haemorrhage intracranial [Unknown]
  - Foetal exposure during pregnancy [Unknown]
  - Neonatal respiratory distress syndrome [Unknown]
  - Hypertonia [Unknown]
  - Motor developmental delay [Unknown]
